FAERS Safety Report 6993942-4 (Version None)
Quarter: 2010Q3

REPORT INFORMATION
  Report Type: 
  Country: None (occurrence: None)
  Receive Date: 20100917
  Receipt Date: 20100901
  Transmission Date: 20110219
  Serious: Yes (Hospitalization)
  Sender: FDA-Public Use
  Company Number: SG-SANOFI-AVENTIS-2010SA052341

PATIENT
  Age: 61 Year
  Sex: Female

DRUGS (4)
  1. METFORMIN HYDROCHLORIDE [Suspect]
  2. CLOPIDOGREL BISULFATE [Suspect]
  3. OMEPRAZOLE [Suspect]
  4. SIMVASTATIN [Suspect]

REACTIONS (5)
  - DRUG RASH WITH EOSINOPHILIA AND SYSTEMIC SYMPTOMS [None]
  - FACE OEDEMA [None]
  - HEPATITIS [None]
  - PYREXIA [None]
  - RASH MORBILLIFORM [None]
